FAERS Safety Report 4801349-0 (Version None)
Quarter: 2005Q4

REPORT INFORMATION
  Report Type: 
  Country: None (occurrence: None)
  Receive Date: 20051012
  Receipt Date: 20050926
  Transmission Date: 20060501
  Serious: Yes (Other)
  Sender: FDA-Public Use
  Company Number: 2005EU002221

PATIENT
  Age: 45 Year
  Sex: Male

DRUGS (1)
  1. PROGRAF [Suspect]
     Indication: LIVER TRANSPLANT

REACTIONS (7)
  - APRAXIA [None]
  - CEREBRAL ATROPHY [None]
  - DYSARTHRIA [None]
  - DYSPHEMIA [None]
  - MUTISM [None]
  - NEUROTOXICITY [None]
  - SPEECH DISORDER [None]
